FAERS Safety Report 11977151 (Version 1)
Quarter: 2016Q1

REPORT INFORMATION
  Report Type: Spontaneous
  Country: US (occurrence: US)
  Receive Date: 20160129
  Receipt Date: 20160129
  Transmission Date: 20160526
  Serious: No
  Sender: FDA-Public Use
  Company Number: US-PERRIGO-15US000506

PATIENT
  Sex: Male
  Weight: 28.12 kg

DRUGS (3)
  1. TRIAMCINOLONE W/UREA [Concomitant]
     Indication: ECZEMA
     Dosage: UNK, PRN
     Route: 061
  2. EUCERIN                            /00021201/ [Concomitant]
     Active Substance: SALICYLIC ACID
     Indication: ECZEMA
     Dosage: UNK
     Route: 061
  3. HALOBETASOL PROPIONATE 0.05% 9R5 [Suspect]
     Active Substance: HALOBETASOL PROPIONATE
     Indication: ECZEMA
     Dosage: A SMALL AMOUNT, PRN
     Route: 061
     Dates: start: 2012, end: 2013

REACTIONS (2)
  - Drug administered to patient of inappropriate age [Recovered/Resolved]
  - Growth retardation [Not Recovered/Not Resolved]

NARRATIVE: CASE EVENT DATE: 2012
